FAERS Safety Report 21387461 (Version 2)
Quarter: 2022Q4

REPORT INFORMATION
  Report Type: Spontaneous
  Country: CA (occurrence: CA)
  Receive Date: 20220928
  Receipt Date: 20221026
  Transmission Date: 20230113
  Serious: Yes (Hospitalization, Other)
  Sender: FDA-Public Use
  Company Number: CA-ANIPHARMA-2021-CA-000556

PATIENT
  Age: 55 Year
  Sex: Female

DRUGS (18)
  1. CANDESARTAN CILEXETIL [Suspect]
     Active Substance: CANDESARTAN CILEXETIL
     Indication: Product used for unknown indication
     Dosage: 4 MG DAILY
     Route: 048
  2. DESOXIMETASONE [Concomitant]
     Active Substance: DESOXIMETASONE
     Route: 058
  3. IBUPROFEN [Concomitant]
     Active Substance: IBUPROFEN
     Dosage: UNKNOWN DOSE TWO TIMES DAILY
     Route: 048
  4. METHOTREXATE [Concomitant]
     Active Substance: METHOTREXATE
     Route: 058
     Dates: start: 20171101, end: 20171220
  5. MOTRIN [Concomitant]
     Active Substance: IBUPROFEN
     Route: 065
  6. NAPROXEN [Concomitant]
     Active Substance: NAPROXEN
     Route: 048
  7. NAPROXEN SODIUM [Concomitant]
     Active Substance: NAPROXEN SODIUM
     Route: 065
  8. CYCLOPHOSPHAMIDE [Concomitant]
     Active Substance: CYCLOPHOSPHAMIDE
     Route: 065
  9. SULFASALAZINE [Concomitant]
     Active Substance: SULFASALAZINE
     Route: 065
  10. IBUPROFEN [Concomitant]
     Active Substance: IBUPROFEN
     Dosage: UNKNOWN DOSE TWO TIMES DAILY
     Route: 048
  11. TYLENOL [Concomitant]
     Active Substance: ACETAMINOPHEN
     Route: 058
     Dates: start: 20171101, end: 20171220
  12. ESOMEPRAZOLE MAGNESIUM [Suspect]
     Active Substance: ESOMEPRAZOLE MAGNESIUM
     Dosage: 40 MG DAILY
     Route: 065
  13. ACETAMINOPHEN [Concomitant]
     Active Substance: ACETAMINOPHEN
     Route: 048
  14. ASPIRIN [Concomitant]
     Active Substance: ASPIRIN
     Route: 065
  15. CELEBREX [Suspect]
     Active Substance: CELECOXIB
     Route: 065
  16. CYCLOSPORINE [Suspect]
     Active Substance: CYCLOSPORINE
     Route: 065
  17. COSENTYX [Suspect]
     Active Substance: SECUKINUMAB
     Dosage: 150 MG WEEK / 150 MG WEEK / 150 MG WEEK
     Route: 058
  18. HYDROMORPHONE HYDROCHLORIDE [Suspect]
     Active Substance: HYDROMORPHONE HYDROCHLORIDE
     Dosage: 2 MG UNK
     Route: 065

REACTIONS (36)
  - Cough [Unknown]
  - Decreased immune responsiveness [Unknown]
  - Dyspnoea [Unknown]
  - Fall [Recovering/Resolving]
  - Feeling abnormal [Unknown]
  - Hypertension [Unknown]
  - Infection [Recovering/Resolving]
  - Limb discomfort [Unknown]
  - Musculoskeletal discomfort [Recovering/Resolving]
  - Musculoskeletal pain [Unknown]
  - Nasal congestion [Unknown]
  - Rash [Unknown]
  - Nasopharyngitis [Unknown]
  - Pain [Not Recovered/Not Resolved]
  - Skin disorder [Not Recovered/Not Resolved]
  - Sleep disorder due to a general medical condition [Unknown]
  - Stress [Unknown]
  - Tendon rupture [Unknown]
  - Varicose vein [Unknown]
  - Drug ineffective [Unknown]
  - Anxiety [Unknown]
  - Abdominal discomfort [Unknown]
  - Arthralgia [Unknown]
  - Back pain [Unknown]
  - Joint swelling [Unknown]
  - Fatigue [Unknown]
  - Musculoskeletal stiffness [Unknown]
  - Tenderness [Unknown]
  - Discomfort [Unknown]
  - Neck pain [Unknown]
  - Headache [Unknown]
  - Malaise [Not Recovered/Not Resolved]
  - Stomatitis [Recovering/Resolving]
  - Accident [Recovering/Resolving]
  - Bacterial infection [Unknown]
  - Cystitis [Unknown]

NARRATIVE: CASE EVENT DATE: 20190101
